FAERS Safety Report 25686483 (Version 1)
Quarter: 2025Q3

REPORT INFORMATION
  Report Type: Spontaneous
  Country: GB (occurrence: GB)
  Receive Date: 20250815
  Receipt Date: 20250815
  Transmission Date: 20251021
  Serious: Yes (Disabling, Other)
  Sender: ELI LILLY AND COMPANY
  Company Number: GB-MHRA-WEBRADR-202508071615240780-VJGZH

PATIENT
  Age: 58 Year
  Sex: Female
  Weight: 146 kg

DRUGS (4)
  1. MOUNJARO [Suspect]
     Active Substance: TIRZEPATIDE
     Indication: Type 2 diabetes mellitus
     Route: 058
     Dates: start: 20250704, end: 20250711
  2. MOUNJARO [Suspect]
     Active Substance: TIRZEPATIDE
     Indication: Weight control
  3. MOUNJARO [Suspect]
     Active Substance: TIRZEPATIDE
     Indication: Rheumatoid arthritis
  4. RITUXIMAB [Concomitant]
     Active Substance: RITUXIMAB
     Indication: Product used for unknown indication

REACTIONS (7)
  - Vomiting projectile [Recovered/Resolved]
  - Diarrhoea [Recovered/Resolved]
  - Food aversion [Unknown]
  - Feeding disorder [Unknown]
  - Abdominal distension [Unknown]
  - Eructation [Unknown]
  - Abdominal pain upper [Unknown]

NARRATIVE: CASE EVENT DATE: 20250704
